FAERS Safety Report 4349298-9 (Version None)
Quarter: 2004Q2

REPORT INFORMATION
  Report Type: 
  Country: None (occurrence: None)
  Receive Date: 20040428
  Receipt Date: 20011211
  Transmission Date: 20050107
  Serious: Yes (Hospitalization)
  Sender: FDA-Public Use
  Company Number: US-BRISTOL-MYERS SQUIBB COMPANY-11621968

PATIENT
  Age: 48 Year
  Sex: Female

DRUGS (7)
  1. BMS224818 [Concomitant]
     Dosage: REALLOCATED ON 22-OCT-2001
     Route: 042
     Dates: start: 20010730
  2. MYCOPHENOLATE MOFETIL [Suspect]
     Dates: start: 20010730
  3. PREDNISONE [Suspect]
     Dates: start: 20010730
  4. CARVEDILOL [Concomitant]
     Dates: start: 20011103
  5. RANITIDINE [Concomitant]
     Dates: start: 20010803
  6. DOXAZOSIN MESYLATE [Concomitant]
     Dates: start: 20011012
  7. COTRIM [Concomitant]
     Dates: start: 20010803

REACTIONS (1)
  - PYREXIA [None]
